FAERS Safety Report 19185894 (Version 2)
Quarter: 2021Q4

REPORT INFORMATION
  Report Type: Spontaneous
  Country: NL (occurrence: DE)
  Receive Date: 20210427
  Receipt Date: 20211007
  Transmission Date: 20220303
  Serious: Yes (Death, Life-Threatening, Hospitalization, Other)
  Sender: FDA-Public Use
  Company Number: DE-KYOWAKIRIN-2021BKK004910

PATIENT

DRUGS (3)
  1. POTELIGEO [Suspect]
     Active Substance: MOGAMULIZUMAB-KPKC
     Indication: Cutaneous T-cell lymphoma
     Dosage: 100 MG, EVERY TWO WEEKS
     Route: 042
     Dates: start: 20201002, end: 20210224
  2. PREGABALIN [Concomitant]
     Active Substance: PREGABALIN
     Indication: Pruritus
     Dosage: 2 DF, DAILY
     Route: 048
     Dates: start: 20200914, end: 20210313
  3. MIRTAZAPINE [Concomitant]
     Active Substance: MIRTAZAPINE
     Indication: Pruritus
     Dosage: 1 DF, DAILY
     Route: 048
     Dates: start: 20210112, end: 20210313

REACTIONS (3)
  - Infectious pleural effusion [Fatal]
  - Procedural haemorrhage [Fatal]
  - Multiple organ dysfunction syndrome [Fatal]

NARRATIVE: CASE EVENT DATE: 20210313
